FAERS Safety Report 5190575-X (Version None)
Quarter: 2006Q4

REPORT INFORMATION
  Report Type: 
  Country: None (occurrence: None)
  Receive Date: 20061222
  Receipt Date: 20061214
  Transmission Date: 20070319
  Serious: Yes (Other)
  Sender: FDA-Public Use
  Company Number: US-JNJFOC-20061205114

PATIENT
  Age: 39 Year
  Sex: Female

DRUGS (5)
  1. RISPERDAL [Suspect]
     Indication: ANXIETY
  2. RISPERDAL [Suspect]
     Indication: DEPRESSION
  3. LEXAPRO [Interacting]
     Indication: DEPRESSION
  4. LEXAPRO [Interacting]
     Indication: ANXIETY
  5. TEGRETOL [Concomitant]

REACTIONS (12)
  - BLOOD PRESSURE INCREASED [None]
  - DEPRESSION [None]
  - DIZZINESS [None]
  - DRUG INTERACTION [None]
  - FEELING OF DESPAIR [None]
  - FEELINGS OF WORTHLESSNESS [None]
  - HALLUCINATION, VISUAL [None]
  - HEADACHE [None]
  - INSOMNIA [None]
  - MENTAL IMPAIRMENT [None]
  - NIGHTMARE [None]
  - TINNITUS [None]
